FAERS Safety Report 9765027 (Version 1)
Quarter: 2013Q4

REPORT INFORMATION
  Report Type: Spontaneous
  Country: FR (occurrence: FR)
  Receive Date: 20131217
  Receipt Date: 20131217
  Transmission Date: 20140711
  Serious: Yes (Other)
  Sender: FDA-Public Use
  Company Number: FR-SA-2013SA127977

PATIENT
  Age: 68 Year
  Sex: Female

DRUGS (3)
  1. LOVENOX [Suspect]
     Indication: PRODUCT USED FOR UNKNOWN INDICATION
     Route: 065
     Dates: start: 20131004, end: 20131104
  2. DOLIPRANE [Suspect]
     Indication: PAIN
     Dosage: 6 TIMES A DAY
     Route: 048
     Dates: start: 20131016, end: 20131104
  3. TOPALGIC [Suspect]
     Indication: PAIN
     Route: 048
     Dates: start: 20131016, end: 20131104

REACTIONS (1)
  - Drug eruption [Recovered/Resolved]
